FAERS Safety Report 7651138-7 (Version None)
Quarter: 2011Q3

REPORT INFORMATION
  Report Type: 
  Country: None (occurrence: None)
  Receive Date: 20110802
  Receipt Date: 20110722
  Transmission Date: 20111222
  Serious: Yes (Death, Other)
  Sender: FDA-Public Use
  Company Number: US-ACTELION-A-NJ2011-49585

PATIENT

DRUGS (4)
  1. OXYGEN [Concomitant]
  2. REVATIO [Concomitant]
  3. COUMADIN [Concomitant]
  4. VENTAVIS [Suspect]
     Indication: PULMONARY ARTERIAL HYPERTENSION
     Dosage: UNK
     Route: 055
     Dates: start: 20071018

REACTIONS (2)
  - GAIT DISTURBANCE [None]
  - DEATH [None]
